FAERS Safety Report 7078816-5 (Version None)
Quarter: 2010Q4

REPORT INFORMATION
  Report Type: 
  Country: None (occurrence: None)
  Receive Date: 20101102
  Receipt Date: 20101027
  Transmission Date: 20110411
  Serious: Yes (Other)
  Sender: FDA-Public Use
  Company Number: JP-PFIZER INC-2010124407

PATIENT
  Age: 67 Year
  Sex: Male

DRUGS (4)
  1. SALAZOPYRIN [Suspect]
     Dosage: UNK
     Route: 048
  2. VANCOMYCIN [Suspect]
     Dosage: UNK
  3. TENORMIN [Concomitant]
     Dosage: UNK
  4. ZOSYN [Concomitant]
     Dosage: UNK

REACTIONS (1)
  - EJECTION FRACTION DECREASED [None]
